FAERS Safety Report 8888984 (Version 2)
Quarter: 2013Q1

REPORT INFORMATION
  Report Type: Report from Study
  Country: FR (occurrence: FR)
  Receive Date: 20121106
  Receipt Date: 20130205
  Transmission Date: 20140127
  Serious: Yes (Hospitalization)
  Sender: FDA-Public Use
  Company Number: PHHO2012FR015918

PATIENT
  Age: 69 Year
  Sex: Male
  Weight: 79.9 kg

DRUGS (4)
  1. EVEROLIMUS [Suspect]
     Indication: RENAL TRANSPLANT
     Dosage: 1 MG, ONCE/SINGLE
     Route: 048
     Dates: start: 20120918
  2. EVEROLIMUS [Suspect]
     Dosage: 2.25 MG, QD
     Route: 002
     Dates: start: 20121018, end: 20121119
  3. CELLCEPT [Suspect]
     Indication: RENAL TRANSPLANT
     Dosage: 1 G, ONCE/SINGLE
     Route: 048
     Dates: start: 20120807
  4. SOLUPRED [Concomitant]
     Indication: RENAL TRANSPLANT
     Dosage: 5 MG, ONCE/SINGLE
     Route: 048
     Dates: start: 20120807

REACTIONS (2)
  - Neutropenia [Recovered/Resolved]
  - Kidney transplant rejection [Recovered/Resolved]
